FAERS Safety Report 4821060-X (Version None)
Quarter: 2005Q4

REPORT INFORMATION
  Report Type: 
  Country: None (occurrence: None)
  Receive Date: 20051104
  Receipt Date: 20050509
  Transmission Date: 20060501
  Serious: Yes (Life-Threatening, Hospitalization)
  Sender: FDA-Public Use
  Company Number: FR-MERCK-0505FRA00018

PATIENT
  Age: 68 Year
  Sex: Male

DRUGS (6)
  1. ZOCOR [Suspect]
     Route: 048
     Dates: end: 20050101
  2. FLUINDIONE [Suspect]
     Indication: THROMBOSIS PROPHYLAXIS
     Route: 048
     Dates: start: 20010101, end: 20050207
  3. FUROSEMIDE [Concomitant]
     Route: 048
  4. BETAMETHASONE [Suspect]
     Indication: BRONCHITIS
     Route: 065
     Dates: start: 20050204, end: 20050201
  5. CEFUROXIME AXETIL [Concomitant]
     Indication: BRONCHITIS
     Route: 065
     Dates: start: 20050204, end: 20050201
  6. ACETYLCYSTEINE [Concomitant]
     Indication: BRONCHITIS
     Route: 065
     Dates: start: 20050204

REACTIONS (4)
  - DRUG INTERACTION [None]
  - INTERNATIONAL NORMALISED RATIO INCREASED [None]
  - INTESTINAL DILATATION [None]
  - NORMOCHROMIC NORMOCYTIC ANAEMIA [None]
